FAERS Safety Report 6402838-8 (Version None)
Quarter: 2009Q4

REPORT INFORMATION
  Report Type: 
  Country: None (occurrence: None)
  Receive Date: 20091016
  Receipt Date: 20091006
  Transmission Date: 20100525
  Serious: Yes (Hospitalization)
  Sender: FDA-Public Use
  Company Number: US-BIOGENIDEC-2005BI015846

PATIENT
  Age: 36 Year
  Sex: Female

DRUGS (3)
  1. AVONEX [Suspect]
     Indication: MULTIPLE SCLEROSIS
     Route: 030
     Dates: start: 19980101
  2. AVONEX [Suspect]
     Route: 030
     Dates: end: 20050301
  3. AVONEX [Suspect]
     Route: 030
     Dates: start: 20080802

REACTIONS (3)
  - CARDIAC FAILURE CONGESTIVE [None]
  - MULTIPLE SCLEROSIS RELAPSE [None]
  - PULMONARY OEDEMA [None]
